FAERS Safety Report 9735469 (Version 2)
Quarter: 2015Q3

REPORT INFORMATION
  Report Type: Spontaneous
  Country: US (occurrence: US)
  Receive Date: 20131206
  Receipt Date: 20150804
  Transmission Date: 20151125
  Serious: No
  Sender: FDA-Public Use
  Company Number: US-GILEAD-2009-0023220

PATIENT
  Age: 63 Year
  Sex: Female

DRUGS (12)
  1. XIFAXAN [Concomitant]
     Active Substance: RIFAXIMIN
  2. COUMADIN [Concomitant]
     Active Substance: WARFARIN SODIUM
  3. METOCLOPRAMIDE. [Concomitant]
     Active Substance: METOCLOPRAMIDE
  4. PRILOSEC [Concomitant]
     Active Substance: OMEPRAZOLE MAGNESIUM
  5. NEXIUM [Concomitant]
     Active Substance: ESOMEPRAZOLE MAGNESIUM
  6. COREG CR [Concomitant]
     Active Substance: CARVEDILOL PHOSPHATE
  7. METHYLPREDNISONE [Concomitant]
     Active Substance: METHYLPREDNISOLONE
  8. LUNESTA [Concomitant]
     Active Substance: ESZOPICLONE
  9. ZANTAC [Concomitant]
     Active Substance: RANITIDINE HYDROCHLORIDE
  10. FOLTX [Concomitant]
     Active Substance: CYANOCOBALAMIN CO-57\FOLIC ACID\PYRIDOXINE HYDROCHLORIDE
  11. LETAIRIS [Suspect]
     Active Substance: AMBRISENTAN
     Indication: PULMONARY ARTERIAL HYPERTENSION
     Route: 048
     Dates: start: 20090224
  12. FERROUS SULFATE [Concomitant]
     Active Substance: FERROUS SULFATE\FERROUS SULFATE, DRIED

REACTIONS (1)
  - Restless legs syndrome [Unknown]
